FAERS Safety Report 11698265 (Version 2)
Quarter: 2016Q2

REPORT INFORMATION
  Report Type: Spontaneous
  Country: US (occurrence: US)
  Receive Date: 20151104
  Receipt Date: 20160407
  Transmission Date: 20160815
  Serious: Yes (Other)
  Sender: FDA-Public Use
  Company Number: US-ALLERGAN-1522690US

PATIENT
  Age: 60 Year
  Sex: Female

DRUGS (2)
  1. LATISSE [Suspect]
     Active Substance: BIMATOPROST
     Indication: GROWTH OF EYELASHES
     Dosage: UNK
     Route: 061
     Dates: start: 201203, end: 201507
  2. LATISSE [Suspect]
     Active Substance: BIMATOPROST
     Dosage: UNK
     Route: 061
     Dates: start: 201203, end: 201507

REACTIONS (6)
  - Blindness [Not Recovered/Not Resolved]
  - Blepharal pigmentation [Not Recovered/Not Resolved]
  - Corneal abrasion [Not Recovered/Not Resolved]
  - Dry eye [Not Recovered/Not Resolved]
  - Hair growth abnormal [Not Recovered/Not Resolved]
  - Corneal dystrophy [Not Recovered/Not Resolved]

NARRATIVE: CASE EVENT DATE: 2012
